FAERS Safety Report 9825802 (Version 1)
Quarter: 2013Q4

REPORT INFORMATION
  Report Type: Spontaneous
  Country: US (occurrence: None)
  Receive Date: 20131223
  Receipt Date: 20131223
  Transmission Date: 20140711
  Serious: Yes (Other)
  Sender: FDA-Public Use
  Company Number: 218001LEO

PATIENT
  Age: 88 Year
  Sex: Female
  Weight: 57.3 kg

DRUGS (2)
  1. PICATO [Suspect]
     Indication: ACTINIC KERATOSIS
     Dosage: (1 IN 1 D), TOPICAL
     Route: 061
     Dates: start: 20120607
  2. ECOTRIN (ACETYLSALICYLIC ACD [Concomitant]

REACTIONS (6)
  - Application site erythema [None]
  - Application site vesicles [None]
  - Application site infection [None]
  - Application site pain [None]
  - Drug administered at inappropriate site [None]
  - Product expiration date issue [None]
